FAERS Safety Report 25952519 (Version 1)
Quarter: 2025Q4

REPORT INFORMATION
  Report Type: Spontaneous
  Country: US (occurrence: US)
  Receive Date: 20251023
  Receipt Date: 20251023
  Transmission Date: 20260118
  Serious: Yes (Other)
  Sender: PFIZER
  Company Number: US-PFIZER INC-202500208050

PATIENT
  Age: 82 Year
  Sex: Female
  Weight: 62.6 kg

DRUGS (1)
  1. VYNDAMAX [Suspect]
     Active Substance: TAFAMIDIS
     Indication: Dyspnoea
     Dosage: 61 MG, 1X/DAY

REACTIONS (9)
  - Cardiac operation [Unknown]
  - Angina pectoris [Unknown]
  - Dry skin [Unknown]
  - Diarrhoea [Recovering/Resolving]
  - Pruritus [Recovering/Resolving]
  - Sensitive skin [Unknown]
  - Skin haemorrhage [Unknown]
  - Dysphonia [Unknown]
  - Off label use [Unknown]

NARRATIVE: CASE EVENT DATE: 20250401
